FAERS Safety Report 9797175 (Version 1)
Quarter: 2014Q1

REPORT INFORMATION
  Report Type: Spontaneous
  Country: FR (occurrence: FR)
  Receive Date: 20140106
  Receipt Date: 20140106
  Transmission Date: 20141002
  Serious: Yes (Hospitalization)
  Sender: FDA-Public Use
  Company Number: PHHY2013FR154324

PATIENT
  Age: 82 Year
  Sex: Female

DRUGS (4)
  1. TAREG [Suspect]
     Dosage: 160 MG, QD
     Route: 048
  2. LAMICTAL [Suspect]
     Dosage: 100 MG, QD
     Route: 048
     Dates: start: 201201
  3. NEURONTIN [Suspect]
     Dosage: 1800 MG, QD
     Route: 048
     Dates: start: 200909
  4. URBANYL [Suspect]
     Dosage: 2.5 MG, QD
     Dates: start: 201201

REACTIONS (1)
  - Age-related macular degeneration [Not Recovered/Not Resolved]
